FAERS Safety Report 16559803 (Version 2)
Quarter: 2019Q3

REPORT INFORMATION
  Report Type: Spontaneous
  Country: PL (occurrence: PL)
  Receive Date: 20190711
  Receipt Date: 20190802
  Transmission Date: 20191004
  Serious: Yes (Life-Threatening, Hospitalization, Other)
  Sender: FDA-Public Use
  Company Number: PL-LUPIN PHARMACEUTICALS INC.-2019-04189

PATIENT
  Age: 77 Year
  Sex: Male

DRUGS (2)
  1. INSULIN [Suspect]
     Active Substance: INSULIN NOS
     Indication: DIABETES MELLITUS
     Dosage: UNK
     Route: 065
  2. MORPHINE [Suspect]
     Active Substance: MORPHINE
     Indication: PAIN
     Dosage: 400 MILLIGRAM, QD (SLOW RELEASE)
     Route: 048

REACTIONS (7)
  - Multiple organ dysfunction syndrome [Recovered/Resolved]
  - Hypoxia [Recovered/Resolved]
  - Acidosis [Recovered/Resolved]
  - Product prescribing error [Unknown]
  - Respiratory failure [Recovered/Resolved]
  - Dehydration [Recovered/Resolved]
  - Accidental overdose [Unknown]
